FAERS Safety Report 5299010-4 (Version None)
Quarter: 2007Q2

REPORT INFORMATION
  Report Type: 
  Country: None (occurrence: None)
  Receive Date: 20070417
  Receipt Date: 20070412
  Transmission Date: 20071010
  Serious: Yes (Life-Threatening)
  Sender: FDA-Public Use
  Company Number: FR-AVENTIS-200710666FR

PATIENT
  Age: 79 Year
  Sex: Female
  Weight: 59 kg

DRUGS (2)
  1. FLAGYL [Suspect]
     Route: 042
     Dates: start: 20061103
  2. CLAMOXYL                           /00249601/ [Suspect]
     Route: 042
     Dates: start: 20061101, end: 20061109

REACTIONS (4)
  - ANURIA [None]
  - HAEMATURIA [None]
  - OVERDOSE [None]
  - RENAL FAILURE ACUTE [None]
